FAERS Safety Report 21754875 (Version 1)
Quarter: 2022Q4

REPORT INFORMATION
  Report Type: Spontaneous
  Country: US (occurrence: None)
  Receive Date: 20221219
  Receipt Date: 20221219
  Transmission Date: 20230112
  Serious: Yes (Death)
  Sender: FDA-Public Use
  Company Number: None

PATIENT
  Age: 71 Year
  Sex: Female

DRUGS (16)
  1. SKYRIZI [Suspect]
     Active Substance: RISANKIZUMAB-RZAA
     Dosage: OTHER FREQUENCY : Q3 MO;?
     Route: 058
     Dates: start: 202106, end: 202212
  2. MULTVITAMIN TABLETS [Concomitant]
  3. VITAMIN C TABLETS [Concomitant]
  4. MULTIVITAMIN TABLETS [Concomitant]
  5. VITAMIN C 1000MG TABLETS [Concomitant]
  6. CYCLOBENZAPRINE [Concomitant]
     Active Substance: CYCLOBENZAPRINE
  7. NYSTATIN [Concomitant]
     Active Substance: NYSTATIN
  8. GLIPIZIDE [Concomitant]
     Active Substance: GLIPIZIDE
  9. METFORMIN [Concomitant]
     Active Substance: METFORMIN HYDROCHLORIDE
  10. FLOVENT [Concomitant]
     Active Substance: FLUTICASONE PROPIONATE
  11. CEPHALEXIN [Concomitant]
     Active Substance: CEPHALEXIN
  12. PREGABALIN [Concomitant]
     Active Substance: PREGABALIN
  13. PREDNISONE [Concomitant]
     Active Substance: PREDNISONE
  14. XARELTO [Concomitant]
     Active Substance: RIVAROXABAN
  15. TRIAMCINOLONE [Concomitant]
     Active Substance: TRIAMCINOLONE
  16. TRELEGY ELLIPTA [Concomitant]
     Active Substance: FLUTICASONE FUROATE\UMECLIDINIUM BROMIDE\VILANTEROL TRIFENATATE

REACTIONS (1)
  - Death [None]

NARRATIVE: CASE EVENT DATE: 20221201
